FAERS Safety Report 19589299 (Version 2)
Quarter: 2021Q3

REPORT INFORMATION
  Report Type: Spontaneous
  Country: JP (occurrence: JP)
  Receive Date: 20210721
  Receipt Date: 20210921
  Transmission Date: 20211014
  Serious: Yes (Death, Hospitalization, Other)
  Sender: FDA-Public Use
  Company Number: JP-ROCHE-2873552

PATIENT
  Age: 76 Year
  Sex: Male
  Weight: 58 kg

DRUGS (16)
  1. MENATETRENONE [Concomitant]
     Active Substance: MENATETRENONE
     Dosage: 1.5 MILLIGRAM, TID
     Route: 048
     Dates: start: 20210209, end: 20210522
  2. LENVATINIB MESILATE [Concomitant]
     Active Substance: LENVATINIB MESYLATE
     Indication: HEPATOCELLULAR CARCINOMA
     Dates: start: 20210217, end: 20210504
  3. TECENTRIQ [Suspect]
     Active Substance: ATEZOLIZUMAB
     Indication: HEPATOCELLULAR CARCINOMA
     Route: 041
     Dates: start: 20210507, end: 20210507
  4. PREDNISOLONE. [Concomitant]
     Active Substance: PREDNISOLONE
     Dosage: 2 MILLIGRAM, QD
     Route: 048
     Dates: start: 20210401, end: 20210522
  5. ZINC. [Concomitant]
     Active Substance: ZINC
     Dosage: 25 MILLIGRAM, BID
     Route: 048
     Dates: start: 20210223, end: 20210522
  6. AVASTIN [Suspect]
     Active Substance: BEVACIZUMAB
     Indication: HEPATOCELLULAR CARCINOMA
     Route: 041
     Dates: start: 20210507, end: 20210507
  7. URSODEOXYCHOLIC ACID [Concomitant]
     Active Substance: URSODIOL
     Dosage: 200 MILLIGRAM, TID
     Route: 048
     Dates: start: 20210305, end: 20210522
  8. LIVACT [Concomitant]
     Active Substance: AMINO ACIDS, SOURCE UNSPECIFIED
     Dosage: 4.15 GRAM, TID
     Route: 048
     Dates: start: 20210209, end: 20210522
  9. SAMSCA [Concomitant]
     Active Substance: TOLVAPTAN
     Dosage: 3.75 MILLIGRAM, QD
     Route: 048
     Dates: start: 20210222, end: 20210522
  10. AMINOLEBAN EN [Concomitant]
     Active Substance: UNSPECIFIED INGREDIENT
     Dosage: 50 GRAM, QD
     Route: 048
     Dates: start: 20210209, end: 20210522
  11. LENVATINIB MESILATE [Concomitant]
     Active Substance: LENVATINIB MESYLATE
     Dates: start: 20210217, end: 20210504
  12. NAIXAN [Concomitant]
     Active Substance: NAPROXEN SODIUM
     Dosage: 200 MILLIGRAM, BID
     Route: 048
     Dates: start: 20210302, end: 20210522
  13. SPIRONOLACTONE. [Concomitant]
     Active Substance: SPIRONOLACTONE
     Dosage: 25 MILLIGRAM, QD
     Route: 048
     Dates: start: 20210217, end: 20210522
  14. LENVATINIB MESILATE [Concomitant]
     Active Substance: LENVATINIB MESYLATE
     Dates: start: 20210217, end: 20210504
  15. RIFXIMA [Concomitant]
     Active Substance: RIFAXIMIN
     Dosage: 400 MILLIGRAM, TID
     Route: 048
     Dates: start: 20210305, end: 20210522
  16. RISPERDAL [Concomitant]
     Active Substance: RISPERIDONE
     Dosage: 1 DOSAGE FORM, QD
     Route: 048
     Dates: start: 20210506, end: 20210522

REACTIONS (4)
  - Renal failure [Fatal]
  - Gastroduodenal ulcer [Unknown]
  - Hepatic failure [Fatal]
  - Cholestasis [Fatal]

NARRATIVE: CASE EVENT DATE: 20210510
